FAERS Safety Report 16222597 (Version 2)
Quarter: 2020Q4

REPORT INFORMATION
  Report Type: Report from Study
  Country: None (occurrence: US)
  Receive Date: 20190422
  Receipt Date: 20201124
  Transmission Date: 20210113
  Serious: Yes (Hospitalization)
  Sender: FDA-Public Use
  Company Number: US-ABBVIE-19K-163-2749564-00

PATIENT
  Age: 52 Year
  Sex: Male

DRUGS (3)
  1. VENETOCLAX. [Suspect]
     Active Substance: VENETOCLAX
     Indication: PRODUCT USED FOR UNKNOWN INDICATION
     Route: 048
     Dates: start: 2019
  2. IMBRUVICA [Suspect]
     Active Substance: IBRUTINIB
     Indication: CHRONIC LYMPHOCYTIC LEUKAEMIA
     Route: 048
  3. CYCLOPHOSPHAMIDE\FLUDARABINE [Suspect]
     Active Substance: CYCLOPHOSPHAMIDE\FLUDARABINE
     Indication: PRODUCT USED FOR UNKNOWN INDICATION
     Route: 065

REACTIONS (14)
  - Disease risk factor [Unknown]
  - Adverse drug reaction [Unknown]
  - Fluid replacement [Unknown]
  - Loss of personal independence in daily activities [Unknown]
  - Blood count abnormal [Unknown]
  - Nausea [Unknown]
  - Fatigue [Unknown]
  - Fluid retention [Unknown]
  - Emotional distress [Unknown]
  - Feeling abnormal [Unknown]
  - Lymphadenopathy [Unknown]
  - Drug ineffective [Unknown]
  - Pyrexia [Unknown]
  - Diarrhoea [Unknown]

NARRATIVE: CASE EVENT DATE: 2019
